FAERS Safety Report 18034945 (Version 1)
Quarter: 2020Q3

REPORT INFORMATION
  Report Type: Spontaneous
  Country: US (occurrence: US)
  Receive Date: 20200716
  Receipt Date: 20200716
  Transmission Date: 20201103
  Serious: No
  Sender: FDA-Public Use
  Company Number: None

PATIENT
  Age: 60 Year
  Sex: Male
  Weight: 108 kg

DRUGS (1)
  1. BLUMEN CLEAR ADVANCED HAND SANITIZER [Suspect]
     Active Substance: ALCOHOL
     Indication: SARS-COV-2 TEST
     Route: 061
     Dates: start: 20200607, end: 20200713

REACTIONS (3)
  - Rash pruritic [None]
  - Rash erythematous [None]
  - Exfoliative rash [None]

NARRATIVE: CASE EVENT DATE: 20200705
